FAERS Safety Report 5773149-9 (Version None)
Quarter: 2008Q2

REPORT INFORMATION
  Report Type: 
  Country: None (occurrence: None)
  Receive Date: 20080615
  Receipt Date: 20080324
  Transmission Date: 20081010
  Serious: No
  Sender: FDA-Public Use
  Company Number: US-BAYER-200811306BCC

PATIENT
  Age: 84 Year
  Sex: Female
  Weight: 50 kg

DRUGS (5)
  1. ALEVE [Suspect]
     Indication: ARTHRALGIA
     Dosage: TOTAL DAILY DOSE: 440 MG  UNIT DOSE: 220 MG
     Route: 048
     Dates: start: 20080301
  2. NORVASC [Concomitant]
  3. VITAMIN B-12 [Concomitant]
  4. ALOE VERA [Concomitant]
  5. GLUCOSAMINE [Concomitant]

REACTIONS (1)
  - ARTHRALGIA [None]
